FAERS Safety Report 18258558 (Version 2)
Quarter: 2020Q4

REPORT INFORMATION
  Report Type: Report from Study
  Country: GB (occurrence: GB)
  Receive Date: 20200911
  Receipt Date: 20201022
  Transmission Date: 20210113
  Serious: Yes (Other)
  Sender: FDA-Public Use
  Company Number: NVSC2020GB247220

PATIENT
  Age: 26 Year
  Sex: Female

DRUGS (1)
  1. HYRIMOZ [Suspect]
     Active Substance: ADALIMUMAB-ADAZ
     Indication: COLITIS ULCERATIVE
     Dosage: UNK UNK, PRN (40/0.8 MG/ML, EOW, 09 JUN 2020)
     Route: 065
     Dates: start: 20200612

REACTIONS (1)
  - Colitis ulcerative [Recovered/Resolved]
